FAERS Safety Report 25419617 (Version 1)
Quarter: 2025Q2

REPORT INFORMATION
  Report Type: Spontaneous
  Country: US (occurrence: US)
  Receive Date: 20250610
  Receipt Date: 20250610
  Transmission Date: 20250716
  Serious: Yes (Death, Other)
  Sender: AMGEN
  Company Number: US-AMGEN-USASP2025109559

PATIENT

DRUGS (1)
  1. PREDNISONE [Suspect]
     Active Substance: PREDNISONE
     Indication: Immunosuppressant drug therapy
     Route: 065

REACTIONS (11)
  - Death [Fatal]
  - Gestational diabetes [Unknown]
  - Abortion spontaneous [Unknown]
  - Ectopic pregnancy [Unknown]
  - Heart transplant rejection [Unknown]
  - Complications of transplanted heart [Unknown]
  - Stillbirth [Unknown]
  - Pre-eclampsia [Unknown]
  - Gestational hypertension [Unknown]
  - Abortion induced [Unknown]
  - Maternal exposure during pregnancy [Unknown]
